FAERS Safety Report 9413376 (Version 1)
Quarter: 2013Q3

REPORT INFORMATION
  Report Type: Spontaneous
  Country: GB (occurrence: GB)
  Receive Date: 20130722
  Receipt Date: 20130722
  Transmission Date: 20140515
  Serious: Yes (Hospitalization)
  Sender: FDA-Public Use
  Company Number: GB-MYLANLABS-2013S1015529

PATIENT
  Age: 63 Year
  Sex: Female

DRUGS (2)
  1. DICLOFENAC [Suspect]
     Indication: OSTEOARTHRITIS
     Route: 065
  2. DICLOFENAC [Suspect]
     Indication: OSTEOARTHRITIS
     Dosage: MODIFIED RELEASE, 150MG/DAY
     Route: 065

REACTIONS (3)
  - Large intestinal stenosis [Recovered/Resolved with Sequelae]
  - Large intestinal ulcer [Recovered/Resolved with Sequelae]
  - Gastrointestinal inflammation [Recovered/Resolved with Sequelae]
